FAERS Safety Report 9230314 (Version 1)
Quarter: 2013Q1

REPORT INFORMATION
  Report Type: Spontaneous
  Country: US (occurrence: None)
  Receive Date: 20121026
  Receipt Date: 20121026
  Transmission Date: 20140127
  Serious: Yes (Other)
  Sender: FDA-Public Use
  Company Number: 1192817

PATIENT
  Age: 66 Year
  Sex: Female

DRUGS (10)
  1. BUPIVACAINE HCL INJ, USP (BUPIVACAINE HYDROCHLORIDE) [Suspect]
     Indication: NECK PAIN
     Dosage: UNKNOWN, ONCE, INJECTION, UNKNOWN
     Dates: start: 20111221, end: 20111221
  2. BUPIVACAINE HCL INJ, USP (BUPIVACAINE HYDROCHLORIDE) [Suspect]
     Indication: SPINAL PAIN
     Dosage: UNKNOWN, ONCE, INJECTION, UNKNOWN
     Dates: start: 20111221, end: 20111221
  3. CARBOCAINE 1% INJ (MEPIVICAINE HYDROCHLORIDE) (MEPIVACAINE HYDROCHLORIDE) [Suspect]
     Indication: NECK PAIN
     Dosage: UNKNOWN, ONCE, INJECTION, UNKNOWN
     Dates: start: 20111221, end: 20111221
  4. CARBOCAINE 1% INJ (MEPIVICAINE HYDROCHLORIDE) (MEPIVACAINE HYDROCHLORIDE) [Suspect]
     Indication: SPINAL PAIN
     Dosage: UNKNOWN, ONCE, INJECTION, UNKNOWN
     Dates: start: 20111221, end: 20111221
  5. DEPO-MEDROL [Suspect]
     Indication: NECK PAIN
     Dosage: UNKNOWN, ONCE, INJECTION, UNKNOWN
     Dates: start: 20111221, end: 20111221
  6. DEPO-MEDROL [Suspect]
     Indication: SPINAL PAIN
     Dosage: UNKNOWN, ONCE, INJECTION, UNKNOWN
     Dates: start: 20111221, end: 20111221
  7. ATIVAN [Concomitant]
  8. VALIUM [Concomitant]
  9. ZYRTEC [Concomitant]
  10. LASIX /00032601/ [Concomitant]

REACTIONS (4)
  - Anxiety [None]
  - Panic attack [None]
  - Heart rate increased [None]
  - Blood pressure increased [None]
